FAERS Safety Report 4999499-1 (Version None)
Quarter: 2006Q2

REPORT INFORMATION
  Report Type: 
  Country: None (occurrence: None)
  Receive Date: 20060510
  Receipt Date: 20060510
  Transmission Date: 20061013
  Serious: Yes (Life-Threatening, Hospitalization)
  Sender: FDA-Public Use
  Company Number: None

PATIENT
  Age: 58 Year
  Sex: Female
  Weight: 64.5 kg

DRUGS (8)
  1. AVASTIN [Suspect]
     Indication: LUNG CANCER METASTATIC
     Dosage: 15 MG/KG IV Q3 WEEKS
     Route: 042
     Dates: start: 20060215
  2. CARBOPLATIN [Suspect]
     Dosage: AUC = 5 625 MG
  3. PACLITAXEL [Concomitant]
  4. CARBOPLATIN [Concomitant]
  5. ESOMEPRAZOLE [Concomitant]
  6. METOCLOPRAMIDE [Concomitant]
  7. DOCUSATE [Concomitant]
  8. ONDANSETRON HCL [Concomitant]

REACTIONS (5)
  - CHEST DISCOMFORT [None]
  - CHEST PAIN [None]
  - ELECTROCARDIOGRAM ST SEGMENT ELEVATION [None]
  - THROAT TIGHTNESS [None]
  - TROPONIN I INCREASED [None]
